FAERS Safety Report 10547468 (Version 1)
Quarter: 2014Q4

REPORT INFORMATION
  Report Type: Spontaneous
  Country: US (occurrence: None)
  Receive Date: 20141023
  Receipt Date: 20141023
  Transmission Date: 20150529
  Serious: Yes (Other)
  Sender: FDA-Public Use
  Company Number: 54973 AE # 1567

PATIENT
  Age: 10 Month
  Sex: Male

DRUGS (5)
  1. AMOXICILLIN. [Concomitant]
     Active Substance: AMOXICILLIN
  2. BABY TEETHING [Suspect]
     Active Substance: ARABICA COFFEE BEAN\ATROPA BELLADONNA\CALCIUM PHOSPHATE\CHAMOMILE
     Indication: TEETHING
     Dosage: AS PER LABEL/AS NEEDED
  3. NYSTATIN. [Concomitant]
     Active Substance: NYSTATIN
  4. TYLENOL [Concomitant]
     Active Substance: ACETAMINOPHEN
  5. MOTRIN [Concomitant]
     Active Substance: IBUPROFEN

REACTIONS (11)
  - Nasopharyngitis [None]
  - Ear infection [None]
  - Gastrooesophageal reflux disease [None]
  - Gastrointestinal bacterial infection [None]
  - Immunodeficiency [None]
  - Seizure like phenomena [None]
  - Depressed level of consciousness [None]
  - Candida infection [None]
  - Vomiting [None]
  - Pyrexia [None]
  - Hypersomnia [None]

NARRATIVE: CASE EVENT DATE: 201408
